FAERS Safety Report 8272535-5 (Version None)
Quarter: 2012Q2

REPORT INFORMATION
  Report Type: 
  Country: None (occurrence: None)
  Receive Date: 20120410
  Receipt Date: 20120330
  Transmission Date: 20120825
  Serious: Yes (Other)
  Sender: FDA-Public Use
  Company Number: CA-ROCHE-1004790

PATIENT
  Sex: Female

DRUGS (9)
  1. REACTINE (CANADA) [Concomitant]
  2. CYCLOBENZAPRINE [Concomitant]
  3. TAMOXIFEN CITRATE [Concomitant]
  4. ADVAIR DISKUS 100/50 [Concomitant]
     Dosage: 125/25UG
  5. MONTELUKAST [Concomitant]
  6. NASONEX [Concomitant]
  7. ATROVENT [Concomitant]
  8. LACTULOSE [Concomitant]
  9. XOLAIR [Suspect]
     Indication: ASTHMA
     Route: 058

REACTIONS (3)
  - LIP SWELLING [None]
  - EYE SWELLING [None]
  - HYPERSENSITIVITY [None]
